FAERS Safety Report 5922979-9 (Version None)
Quarter: 2008Q4

REPORT INFORMATION
  Report Type: 
  Country: None (occurrence: None)
  Receive Date: 20081018
  Receipt Date: 20081008
  Transmission Date: 20090506
  Serious: Yes (Other)
  Sender: FDA-Public Use
  Company Number: US-PFIZER INC-2008043742

PATIENT
  Sex: Female
  Weight: 122.5 kg

DRUGS (2)
  1. BEXTRA [Suspect]
     Indication: PAIN IN EXTREMITY
     Dates: start: 20040101
  2. BEXTRA [Suspect]

REACTIONS (5)
  - DEPRESSION [None]
  - LUNG DISORDER [None]
  - SCAR [None]
  - SKIN LESION [None]
  - SKIN REACTION [None]
